FAERS Safety Report 9445336 (Version 1)
Quarter: 2013Q3

REPORT INFORMATION
  Report Type: Report from Study
  Country: US (occurrence: US)
  Receive Date: 20130807
  Receipt Date: 20130807
  Transmission Date: 20140515
  Serious: Yes (Hospitalization, Other)
  Sender: FDA-Public Use
  Company Number: US-ABBOTT-13P-163-1127282-00

PATIENT
  Sex: Female

DRUGS (4)
  1. HUMIRA [Suspect]
     Indication: RHEUMATOID ARTHRITIS
  2. VANCOMYCIN [Suspect]
     Indication: STAPHYLOCOCCAL INFECTION
     Route: 042
  3. CELEBREX [Concomitant]
     Indication: RHEUMATOID ARTHRITIS
  4. ACLUVA [Concomitant]
     Indication: RHEUMATOID ARTHRITIS

REACTIONS (9)
  - Cyst [Recovered/Resolved]
  - Cyst [Recovered/Resolved]
  - Arthrodesis [Recovered/Resolved]
  - Arthrodesis [Recovered/Resolved]
  - Hysterectomy [Recovered/Resolved]
  - Arthrodesis [Recovered/Resolved]
  - Wound infection staphylococcal [Recovered/Resolved]
  - Urticaria [Recovered/Resolved]
  - Pruritus [Recovered/Resolved]
